FAERS Safety Report 11253824 (Version 1)
Quarter: 2015Q3

REPORT INFORMATION
  Report Type: Spontaneous
  Country: US (occurrence: None)
  Receive Date: 20150708
  Receipt Date: 20150708
  Transmission Date: 20151125
  Serious: No
  Sender: FDA-Public Use
  Company Number: None

PATIENT
  Age: 56 Year
  Sex: Female

DRUGS (14)
  1. GABAPENTIN. [Concomitant]
     Active Substance: GABAPENTIN
  2. METFORMIN [Concomitant]
     Active Substance: METFORMIN HYDROCHLORIDE
  3. OXYBUTYNIN [Concomitant]
     Active Substance: OXYBUTYNIN
  4. GLIPIZIDE. [Concomitant]
     Active Substance: GLIPIZIDE
  5. NOVOLIN [Concomitant]
     Active Substance: INSULIN HUMAN
  6. ATORVASTATIN [Concomitant]
     Active Substance: ATORVASTATIN
  7. LOSARTAN. [Concomitant]
     Active Substance: LOSARTAN
  8. AVONEX [Concomitant]
     Active Substance: INTERFERON BETA-1A
  9. AMPYRA [Suspect]
     Active Substance: DALFAMPRIDINE
     Indication: MULTIPLE SCLEROSIS
     Route: 048
     Dates: start: 201106
  10. TOPIRAMATE. [Concomitant]
     Active Substance: TOPIRAMATE
  11. HYDROCODONE/APAP [Concomitant]
     Active Substance: ACETAMINOPHEN\HYDROCODONE BITARTRATE
  12. TRAZODONE [Concomitant]
     Active Substance: TRAZODONE HYDROCHLORIDE
  13. ALBUTEROL HFA [Concomitant]
     Active Substance: ALBUTEROL SULFATE
  14. MODAFINIL. [Concomitant]
     Active Substance: MODAFINIL

REACTIONS (1)
  - Laboratory test abnormal [None]

NARRATIVE: CASE EVENT DATE: 20150625
